FAERS Safety Report 18405156 (Version 1)
Quarter: 2020Q4

REPORT INFORMATION
  Report Type: Spontaneous
  Country: US (occurrence: US)
  Receive Date: 20201020
  Receipt Date: 20201020
  Transmission Date: 20210114
  Serious: Yes (Hospitalization)
  Sender: FDA-Public Use
  Company Number: US-ACELLA PHARMACEUTICALS, LLC-2092945

PATIENT
  Age: 40 Year
  Sex: Female
  Weight: 66.82 kg

DRUGS (2)
  1. NP THYROID [Suspect]
     Active Substance: LEVOTHYROXINE\LIOTHYRONINE
     Indication: HYPOTHYROIDISM
     Route: 048
     Dates: start: 202008, end: 202009
  2. VITAMIN B12 [Concomitant]
     Active Substance: CYANOCOBALAMIN
     Route: 065

REACTIONS (16)
  - Blood thyroid stimulating hormone increased [Unknown]
  - Drug ineffective [Unknown]
  - Nystagmus [Not Recovered/Not Resolved]
  - Thyroid hormones decreased [Unknown]
  - Confusional state [Unknown]
  - Hashimoto^s encephalopathy [Unknown]
  - Bradyphrenia [Unknown]
  - Headache [Not Recovered/Not Resolved]
  - Feeling abnormal [Unknown]
  - Dizziness [Not Recovered/Not Resolved]
  - Palpitations [Not Recovered/Not Resolved]
  - Hypotension [Unknown]
  - Head discomfort [Unknown]
  - Meningitis chemical [Unknown]
  - Nausea [Unknown]
  - Thyrotoxic crisis [Unknown]

NARRATIVE: CASE EVENT DATE: 202008
